FAERS Safety Report 13901241 (Version 1)
Quarter: 2017Q3

REPORT INFORMATION
  Report Type: Spontaneous
  Country: US (occurrence: US)
  Receive Date: 20170824
  Receipt Date: 20170824
  Transmission Date: 20171127
  Serious: Yes (Other)
  Sender: FDA-Public Use
  Company Number: US-JNJFOC-20170813879

PATIENT

DRUGS (7)
  1. IBRUTINIB [Suspect]
     Active Substance: IBRUTINIB
     Indication: MANTLE CELL LYMPHOMA
     Dosage: DOSE RANGED FROM 140 TO 560 MG ONCE DAILY
     Route: 048
  2. IBRUTINIB [Suspect]
     Active Substance: IBRUTINIB
     Indication: CHRONIC LYMPHOCYTIC LEUKAEMIA
     Dosage: DOSE RANGED FROM 140 TO 560 MG ONCE DAILY
     Route: 048
  3. IBRUTINIB [Suspect]
     Active Substance: IBRUTINIB
     Indication: B-CELL LYMPHOMA
     Dosage: DOSE RANGED FROM 140 TO 560 MG ONCE DAILY
     Route: 048
  4. IBRUTINIB [Suspect]
     Active Substance: IBRUTINIB
     Indication: WALDENSTROM^S MACROGLOBULINAEMIA
     Dosage: DOSE RANGED FROM 140 TO 560 MG ONCE DAILY
     Route: 048
  5. IBRUTINIB [Suspect]
     Active Substance: IBRUTINIB
     Indication: LYMPHOCYTIC LYMPHOMA
     Dosage: DOSE RANGED FROM 140 TO 560 MG ONCE DAILY
     Route: 048
  6. IBRUTINIB [Suspect]
     Active Substance: IBRUTINIB
     Indication: MARGINAL ZONE LYMPHOMA
     Dosage: DOSE RANGED FROM 140 TO 560 MG ONCE DAILY
     Route: 048
  7. IBRUTINIB [Suspect]
     Active Substance: IBRUTINIB
     Indication: DIFFUSE LARGE B-CELL LYMPHOMA
     Dosage: DOSE RANGED FROM 140 TO 560 MG ONCE DAILY
     Route: 048

REACTIONS (28)
  - Off label use [Unknown]
  - Neutropenia [Unknown]
  - Lymphocytosis [Unknown]
  - Gastroenteritis [Unknown]
  - Stomatitis [Unknown]
  - Product use in unapproved indication [Unknown]
  - Fatigue [Unknown]
  - Laryngitis [Unknown]
  - Increased tendency to bruise [Unknown]
  - Anaemia [Unknown]
  - Hypertension [Unknown]
  - Pneumonia [Unknown]
  - Rectal haemorrhage [Unknown]
  - Infection [Unknown]
  - Haematuria [Unknown]
  - Diarrhoea [Unknown]
  - Oedema [Unknown]
  - Thrombocytopenia [Unknown]
  - Epistaxis [Unknown]
  - Muscle spasms [Unknown]
  - Tooth infection [Unknown]
  - Sinusitis [Unknown]
  - Nausea [Unknown]
  - Bacteraemia [Unknown]
  - Otitis media [Unknown]
  - Cellulitis [Unknown]
  - Rash [Unknown]
  - Blood immunoglobulin G decreased [Unknown]
